FAERS Safety Report 14429093 (Version 1)
Quarter: 2018Q1

REPORT INFORMATION
  Report Type: Spontaneous
  Country: US (occurrence: US)
  Receive Date: 20180123
  Receipt Date: 20180123
  Transmission Date: 20180509
  Serious: Yes (Hospitalization)
  Sender: FDA-Public Use
  Company Number: None

PATIENT
  Age: 8 Year
  Sex: Female
  Weight: 34.02 kg

DRUGS (4)
  1. MOTRIN [Concomitant]
     Active Substance: IBUPROFEN
  2. LUPRON DEPOT-PED [Suspect]
     Active Substance: LEUPROLIDE ACETATE
     Indication: PRECOCIOUS PUBERTY
     Dosage: DOSE - 1 INJECTION?ROUTE - INJECTION?FREQUENCY - 3 MONTHS
     Dates: start: 20170621, end: 20170905
  3. AFTER SURGERY ANTIBIOTICS [Concomitant]
  4. TYLENOL [Concomitant]
     Active Substance: ACETAMINOPHEN

REACTIONS (9)
  - Decreased appetite [None]
  - Injection site abscess [None]
  - Gait disturbance [None]
  - Mood swings [None]
  - Weight decreased [None]
  - Pyrexia [None]
  - Malaise [None]
  - Injection site pain [None]
  - Injection site swelling [None]

NARRATIVE: CASE EVENT DATE: 20170809
